FAERS Safety Report 20208712 (Version 1)
Quarter: 2021Q4

REPORT INFORMATION
  Report Type: Report from Study
  Country: US (occurrence: US)
  Receive Date: 20211220
  Receipt Date: 20211220
  Transmission Date: 20220304
  Serious: Yes (Other)
  Sender: FDA-Public Use
  Company Number: US-ALXN-A202109607

PATIENT
  Sex: Female

DRUGS (2)
  1. ULTOMIRIS [Suspect]
     Active Substance: RAVULIZUMAB-CWVZ
     Indication: Paroxysmal nocturnal haemoglobinuria
     Dosage: UNK
     Route: 065
  2. ULTOMIRIS [Suspect]
     Active Substance: RAVULIZUMAB-CWVZ
     Dosage: UNK
     Route: 065
     Dates: start: 20210826

REACTIONS (7)
  - Angina pectoris [Unknown]
  - Chest discomfort [Unknown]
  - Urticaria [Unknown]
  - Feeling abnormal [Unknown]
  - Headache [Unknown]
  - Muscle spasms [Unknown]
  - Back pain [Unknown]

NARRATIVE: CASE EVENT DATE: 20210826
